FAERS Safety Report 16169074 (Version 1)
Quarter: 2019Q2

REPORT INFORMATION
  Report Type: Spontaneous
  Country: JP (occurrence: JP)
  Receive Date: 20190408
  Receipt Date: 20190408
  Transmission Date: 20190711
  Serious: Yes (Other)
  Sender: FDA-Public Use
  Company Number: JP-JNJFOC-20190408862

PATIENT
  Age: 74 Year
  Sex: Female

DRUGS (3)
  1. MEPOLIZUMAB [Concomitant]
     Active Substance: MEPOLIZUMAB
     Indication: ASTHMA
     Route: 065
  2. AZULFIDINE EN-TABS [Concomitant]
     Active Substance: SULFASALAZINE
     Route: 048
  3. SIMPONI [Suspect]
     Active Substance: GOLIMUMAB
     Indication: RHEUMATOID ARTHRITIS
     Route: 058

REACTIONS (1)
  - Hip arthroplasty [Unknown]
